FAERS Safety Report 6978040-8 (Version None)
Quarter: 2010Q3

REPORT INFORMATION
  Report Type: 
  Country: None (occurrence: None)
  Receive Date: 20100913
  Receipt Date: 20100901
  Transmission Date: 20110219
  Serious: Yes (Hospitalization)
  Sender: FDA-Public Use
  Company Number: CA-JNJFOC-20100901650

PATIENT
  Sex: Female
  Weight: 75.5 kg

DRUGS (8)
  1. REMICADE [Suspect]
     Indication: CROHN'S DISEASE
     Route: 042
  2. DESMOPRESSIN ACETATE [Concomitant]
  3. DESMOPRESSIN ACETATE [Concomitant]
  4. SEASONALE [Concomitant]
  5. FERROUS SULFATE TAB [Concomitant]
  6. M.V.I. [Concomitant]
  7. CALCIUM [Concomitant]
  8. METHADONE HCL [Concomitant]

REACTIONS (2)
  - ABDOMINAL PAIN [None]
  - VOMITING [None]
